FAERS Safety Report 7594513-1 (Version None)
Quarter: 2011Q2

REPORT INFORMATION
  Report Type: 
  Country: None (occurrence: None)
  Receive Date: 20110628
  Receipt Date: 20110622
  Transmission Date: 20111010
  Serious: Yes (Other)
  Sender: FDA-Public Use
  Company Number: ACO_23450_2011

PATIENT
  Age: 68 Year
  Sex: Male
  Weight: 72.6 kg

DRUGS (13)
  1. CELLCEPT /01275102/ (MYCOPHENOLATE MOFETIL) [Concomitant]
  2. AVODART [Concomitant]
  3. AMITRIPTYLINE HCL [Concomitant]
  4. SODIUM BICARBONATE IN PLASTIC CONTAINER [Concomitant]
  5. FLOMAX /00889901/ (MORNIFLUMATE) [Concomitant]
  6. PROGRAF [Concomitant]
  7. METOPROLOL TARTRATE [Concomitant]
  8. AVALIDE [Concomitant]
  9. PREDNISONE [Concomitant]
  10. AMPYRA [Suspect]
     Indication: GAIT DISTURBANCE
     Dosage: 10 MG, QD, ORAL ; 10 MG, QD, ORAL
     Route: 048
     Dates: start: 20100901, end: 20100901
  11. AMPYRA [Suspect]
     Indication: GAIT DISTURBANCE
     Dosage: 10 MG, QD, ORAL ; 10 MG, QD, ORAL
     Route: 048
     Dates: start: 20101001, end: 20101001
  12. ADDERALL 10 [Concomitant]
  13. LEVOTHYROXINE SODIUM [Concomitant]

REACTIONS (3)
  - RENAL DISORDER [None]
  - OEDEMA PERIPHERAL [None]
  - INAPPROPRIATE SCHEDULE OF DRUG ADMINISTRATION [None]
